FAERS Safety Report 10146985 (Version 2)
Quarter: 2014Q2

REPORT INFORMATION
  Report Type: Spontaneous
  Country: US (occurrence: US)
  Receive Date: 20140501
  Receipt Date: 20140605
  Transmission Date: 20141212
  Serious: Yes (Hospitalization)
  Sender: FDA-Public Use
  Company Number: US-GLAXOSMITHKLINE-A1071482A

PATIENT
  Age: 51 Year
  Sex: Male

DRUGS (3)
  1. ADVAIR [Suspect]
     Indication: ASTHMA
     Route: 055
  2. VENTOLIN [Suspect]
     Indication: PRODUCT USED FOR UNKNOWN INDICATION
     Route: 065
  3. UNSPECIFIED MEDICATION [Suspect]
     Indication: PRODUCT USED FOR UNKNOWN INDICATION
     Route: 065

REACTIONS (9)
  - Respiratory distress [Unknown]
  - Respiratory failure [Unknown]
  - Drug ineffective [Unknown]
  - Respiratory disorder [Unknown]
  - Drug administration error [Unknown]
  - Dyspnoea [Unknown]
  - Asthma [Unknown]
  - Respiratory arrest [Unknown]
  - Cyanosis [Unknown]
